FAERS Safety Report 18824134 (Version 3)
Quarter: 2022Q4

REPORT INFORMATION
  Report Type: Other
  Country: US (occurrence: None)
  Receive Date: 20210202
  Receipt Date: 20221106
  Transmission Date: 20230112
  Serious: Yes (Hospitalization)
  Sender: FDA-Public Use
  Company Number: US-ROCHE-2761199

PATIENT
  Age: 60 Year
  Sex: Female

DRUGS (6)
  1. ERIVEDGE [Suspect]
     Active Substance: VISMODEGIB
     Indication: Multiple congenital abnormalities
     Route: 048
     Dates: start: 2014
  2. ERIVEDGE [Suspect]
     Active Substance: VISMODEGIB
     Indication: Basal cell carcinoma
  3. CARISOPRODOL [Concomitant]
     Active Substance: CARISOPRODOL
  4. HYDROCHLOROTHIAZIDE [Concomitant]
     Active Substance: HYDROCHLOROTHIAZIDE
  5. ACETAMINOPHEN [Concomitant]
     Active Substance: ACETAMINOPHEN
  6. ONDANSETRON [Concomitant]
     Active Substance: ONDANSETRON

REACTIONS (9)
  - Blood sodium decreased [Unknown]
  - Blood potassium decreased [Unknown]
  - Off label use [Unknown]
  - Diarrhoea [Unknown]
  - Vomiting [Unknown]
  - COVID-19 [Recovered/Resolved]
  - Immune system disorder [Not Recovered/Not Resolved]
  - Weight decreased [Not Recovered/Not Resolved]
  - Alopecia [Not Recovered/Not Resolved]

NARRATIVE: CASE EVENT DATE: 20201201
